FAERS Safety Report 14943269 (Version 1)
Quarter: 2018Q2

REPORT INFORMATION
  Report Type: Spontaneous
  Country: AT (occurrence: AT)
  Receive Date: 20180528
  Receipt Date: 20180528
  Transmission Date: 20180711
  Serious: Yes (Death, Hospitalization, Other)
  Sender: FDA-Public Use
  Company Number: AT-009507513-1805AUT008793

PATIENT
  Age: 68 Year
  Sex: Male

DRUGS (6)
  1. OMEC [Suspect]
     Active Substance: OMEPRAZOLE
     Indication: PRODUCT USED FOR UNKNOWN INDICATION
     Dosage: 20 MG, QD
     Route: 065
  2. AMLODIBENE [Suspect]
     Active Substance: AMLODIPINE BESYLATE
     Indication: PRODUCT USED FOR UNKNOWN INDICATION
     Dosage: 5 MG, BID
     Route: 065
  3. THROMBO ASS [Suspect]
     Active Substance: ASPIRIN
     Indication: PRODUCT USED FOR UNKNOWN INDICATION
     Dosage: 100 MG, QD
     Route: 065
  4. PLAVIX [Suspect]
     Active Substance: CLOPIDOGREL BISULFATE
     Indication: PRODUCT USED FOR UNKNOWN INDICATION
     Dosage: 75 MG, QD
     Route: 065
  5. SIMVASTATIN. [Suspect]
     Active Substance: SIMVASTATIN
     Indication: PRODUCT USED FOR UNKNOWN INDICATION
     Dosage: 40 MG, BID
     Route: 065
  6. JAKAVI [Suspect]
     Active Substance: RUXOLITINIB
     Indication: POLYCYTHAEMIA VERA
     Dosage: 2 X 10 MG
     Route: 065
     Dates: start: 201505

REACTIONS (11)
  - Acute coronary syndrome [Unknown]
  - Hypertension [Unknown]
  - Myocardial ischaemia [Fatal]
  - Pulmonary embolism [Fatal]
  - Splenomegaly [Unknown]
  - Polycythaemia vera [Unknown]
  - Intra-abdominal haematoma [Unknown]
  - Blood lactate dehydrogenase increased [Unknown]
  - Fall [Unknown]
  - Myocardial infarction [Fatal]
  - Myelofibrosis [Unknown]

NARRATIVE: CASE EVENT DATE: 201605
